FAERS Safety Report 10201398 (Version 1)
Quarter: 2014Q2

REPORT INFORMATION
  Report Type: Spontaneous
  Country: GB (occurrence: GB)
  Receive Date: 20140528
  Receipt Date: 20140528
  Transmission Date: 20141212
  Serious: Yes (Other)
  Sender: FDA-Public Use
  Company Number: GB-SA-2014SA063618

PATIENT
  Age: 55 Year
  Sex: Female
  Weight: 81.4 kg

DRUGS (3)
  1. CLEXANE [Suspect]
     Indication: PULMONARY EMBOLISM
     Dosage: 1.5 MILLIGRAM/KILOGRAM
     Route: 065
     Dates: start: 20130520
  2. REVLIMID [Suspect]
     Indication: MYELODYSPLASTIC SYNDROME
     Dosage: 10 MILLIGRAM
     Route: 048
     Dates: start: 20130822
  3. REVLIMID [Suspect]
     Indication: MYELODYSPLASTIC SYNDROME
     Dosage: 10 MILLIGRAM
     Route: 048
     Dates: end: 20131001

REACTIONS (1)
  - Liver function test abnormal [Not Recovered/Not Resolved]
